FAERS Safety Report 15829643 (Version 1)
Quarter: 2019Q1

REPORT INFORMATION
  Report Type: Spontaneous
  Country: US (occurrence: US)
  Receive Date: 20190115
  Receipt Date: 20190115
  Transmission Date: 20190417
  Serious: No
  Sender: FDA-Public Use
  Company Number: US-ALLERGAN-1848500US

PATIENT
  Age: 56 Year
  Sex: Male

DRUGS (6)
  1. RESTASIS [Suspect]
     Active Substance: CYCLOSPORINE
     Indication: OCULAR ROSACEA
     Dosage: 2 GTT, BID
     Route: 047
  2. DOXYCLOCLINE [Concomitant]
     Indication: EYE DISORDER
     Dosage: 40 MG, UNK
     Route: 048
     Dates: start: 20180828
  3. SOOTHE XP [Concomitant]
     Active Substance: LIGHT MINERAL OIL\MINERAL OIL
  4. SUCRALFATE. [Concomitant]
     Active Substance: SUCRALFATE
     Indication: OESOPHAGITIS
  5. RESTASIS [Suspect]
     Active Substance: CYCLOSPORINE
     Indication: BLEPHARITIS
     Dosage: 2 GTT, BID
     Route: 047
     Dates: start: 20180822
  6. RETAINE [Concomitant]
     Active Substance: HYPROMELLOSE 2910 (4000 MPA.S)
     Route: 047

REACTIONS (7)
  - Accidental exposure to product [Unknown]
  - Off label use [Unknown]
  - Product container issue [Unknown]
  - Blepharitis [Not Recovered/Not Resolved]
  - Eyelid irritation [Not Recovered/Not Resolved]
  - Incorrect dose administered [Unknown]
  - Erythema of eyelid [Not Recovered/Not Resolved]

NARRATIVE: CASE EVENT DATE: 20180822
